FAERS Safety Report 9619648 (Version 1)
Quarter: 2013Q4

REPORT INFORMATION
  Report Type: Report from Study
  Country: AR (occurrence: AR)
  Receive Date: 20131014
  Receipt Date: 20131014
  Transmission Date: 20140711
  Serious: Yes (Hospitalization)
  Sender: FDA-Public Use
  Company Number: PHHY2013AR114943

PATIENT
  Sex: Male

DRUGS (7)
  1. LAPENAX [Suspect]
     Indication: PSYCHOTIC DISORDER
     Dosage: 150 MG, UNK
     Route: 048
     Dates: start: 20130320
  2. LAPENAX [Suspect]
     Dosage: 200 MG, UNK
     Route: 048
     Dates: start: 20131010
  3. HALOPERIDOL [Concomitant]
     Dosage: UNK UKN, UNK
  4. OLANZAPINE [Concomitant]
     Dosage: UNK UKN, UNK
  5. PREGABALIN [Concomitant]
     Dosage: UNK UKN, UNK
  6. LEVOMEPROMAZINE [Concomitant]
     Dosage: UNK UKN, UNK
  7. BENZODIAZEPINES [Concomitant]
     Dosage: UNK UKN, UNK

REACTIONS (1)
  - Psychotic disorder [Not Recovered/Not Resolved]
